FAERS Safety Report 10214891 (Version 3)
Quarter: 2014Q3

REPORT INFORMATION
  Report Type: Report from Study
  Country: CN (occurrence: CN)
  Receive Date: 20140603
  Receipt Date: 20140714
  Transmission Date: 20150326
  Serious: Yes (Death)
  Sender: FDA-Public Use
  Company Number: CN-ASTELLAS-2014JP008158

PATIENT
  Age: 71 Year
  Sex: Female

DRUGS (4)
  1. MEROPENEM. [Concomitant]
     Active Substance: MEROPENEM
     Indication: FUNGAL INFECTION
     Dosage: UNK UNK, UNKNOWN FREQ.
     Route: 042
     Dates: start: 20140508, end: 20140512
  2. FLUCONAZOLE. [Concomitant]
     Active Substance: FLUCONAZOLE
     Indication: FUNGAL INFECTION
     Dosage: UNK UNK, UNKNOWN FREQ.
     Route: 042
     Dates: start: 20140508, end: 20140512
  3. MACRODANTIN [Concomitant]
     Active Substance: NITROFURANTOIN
     Indication: RENAL IMPAIRMENT
     Route: 042
     Dates: start: 20140510, end: 20140512
  4. MICAFUNGIN [Suspect]
     Active Substance: MICAFUNGIN
     Indication: FUNGAL INFECTION
     Route: 042
     Dates: start: 20140508, end: 20140512

REACTIONS (1)
  - Death [Fatal]

NARRATIVE: CASE EVENT DATE: 20140516
